FAERS Safety Report 21245266 (Version 3)
Quarter: 2023Q4

REPORT INFORMATION
  Report Type: Spontaneous
  Country: PK (occurrence: PK)
  Receive Date: 20220823
  Receipt Date: 20231024
  Transmission Date: 20240109
  Serious: Yes (Other)
  Sender: FDA-Public Use
  Company Number: PK-PFIZER INC-2019430430

PATIENT
  Age: 46 Year
  Sex: Male

DRUGS (10)
  1. ENBREL [Suspect]
     Active Substance: ETANERCEPT
     Indication: Ankylosing spondylitis
     Dosage: 50 MILLIGRAM, QMO
     Route: 058
  2. ENBREL [Suspect]
     Active Substance: ETANERCEPT
     Dosage: 50MG EVERY 2 WEEKS
     Route: 058
     Dates: start: 20191003
  3. ENBREL [Suspect]
     Active Substance: ETANERCEPT
     Dosage: 50MG EVERY 3 WEEKS
     Route: 058
  4. ENBREL [Suspect]
     Active Substance: ETANERCEPT
     Dosage: 50MG EVERY 2 WEEKS
     Route: 058
  5. FOLIC ACID [Concomitant]
     Active Substance: FOLIC ACID
     Dosage: UNK, EVERY DAY BUT NOT ON FRIDAY
  6. METHOTREXATE [Concomitant]
     Active Substance: METHOTREXATE
     Dosage: 10 MILLIGRAM, QWK, TAKE ONLY EVERY FRIDAY
  7. PANADOL [Concomitant]
     Active Substance: ACETAMINOPHEN
     Indication: Pain
     Dosage: UNK USE THREE 2+2+2
  8. ETORICOXIB [Concomitant]
     Active Substance: ETORICOXIB
     Indication: Pain
     Dosage: 120 MILLIGRAM, QD
  9. SUNVITE [Concomitant]
     Indication: Back pain
     Dosage: UNK, ADD TO MILK AND DRINK ONE EVERY WEEK
  10. Dolgina [Concomitant]
     Indication: Abdominal pain upper
     Dosage: 60 MILLIGRAM,  1 BEFORE BREAKFAST IF TAKING STRONG PAINKILLER

REACTIONS (4)
  - Off label use [Unknown]
  - Ankylosing spondylitis [Unknown]
  - Disease progression [Unknown]
  - Neuropathy peripheral [Unknown]

NARRATIVE: CASE EVENT DATE: 20220723
